FAERS Safety Report 5826182-2 (Version None)
Quarter: 2008Q3

REPORT INFORMATION
  Report Type: 
  Country: None (occurrence: None)
  Receive Date: 20080723
  Receipt Date: 20080714
  Transmission Date: 20090109
  Serious: Yes (Other)
  Sender: FDA-Public Use
  Company Number: GXKR2008DE06575

PATIENT
  Age: 47 Year
  Sex: Male

DRUGS (2)
  1. PREDNISOLONE [Suspect]
     Indication: NECROTISING RETINITIS
     Dosage: 50 MG, QD, ORAL; 20 MG, QD, ORAL
     Route: 048
  2. ACYCLOVIR [Concomitant]

REACTIONS (3)
  - CHORIORETINOPATHY [None]
  - MACULAR OEDEMA [None]
  - VISUAL ACUITY REDUCED [None]
